FAERS Safety Report 5915888-2 (Version None)
Quarter: 2008Q4

REPORT INFORMATION
  Report Type: 
  Country: None (occurrence: None)
  Receive Date: 20081010
  Receipt Date: 20081003
  Transmission Date: 20090506
  Serious: Yes (Other)
  Sender: FDA-Public Use
  Company Number: US-PFIZER INC-2008083939

PATIENT
  Sex: Female
  Weight: 60.3 kg

DRUGS (7)
  1. LYRICA [Suspect]
     Indication: FIBROMYALGIA
     Dates: start: 20080801, end: 20080101
  2. IBANDRONATE SODIUM [Concomitant]
  3. PREMPRO [Concomitant]
  4. OXYCONTIN [Concomitant]
  5. SYNTHROID [Concomitant]
  6. VITAMIN A [Concomitant]
  7. CALCIUM [Concomitant]

REACTIONS (7)
  - ACTIVITIES OF DAILY LIVING IMPAIRED [None]
  - CHROMATOPSIA [None]
  - DRUG INEFFECTIVE [None]
  - MEMORY IMPAIRMENT [None]
  - VISUAL ACUITY REDUCED [None]
  - VISUAL FIELD DEFECT [None]
  - VISUAL IMPAIRMENT [None]
